FAERS Safety Report 9586955 (Version 1)
Quarter: 2013Q4

REPORT INFORMATION
  Report Type: Spontaneous
  Country: US (occurrence: None)
  Receive Date: 20131002
  Receipt Date: 20131002
  Transmission Date: 20140711
  Serious: No
  Sender: FDA-Public Use
  Company Number: DL2013-0556

PATIENT
  Age: 33 Year
  Sex: Female

DRUGS (2)
  1. MIFEPRISTONE TABLETS, 200 MG (DANCO LABS) [Suspect]
     Indication: ABORTION INDUCED
     Route: 048
     Dates: start: 20130613
  2. MISOPROSTOL TABLETS, 200 MCG [Suspect]
     Dosage: 800 MCG. VAGINAL
     Route: 067
     Dates: start: 20130615

REACTIONS (1)
  - Abortion incomplete [None]
